FAERS Safety Report 12934037 (Version 2)
Quarter: 2017Q2

REPORT INFORMATION
  Report Type: Spontaneous
  Country: FI (occurrence: FI)
  Receive Date: 20161111
  Receipt Date: 20170419
  Transmission Date: 20170830
  Serious: Yes (Other)
  Sender: FDA-Public Use
  Company Number: PHHY2016FI152034

PATIENT
  Sex: Male

DRUGS (3)
  1. TETRACYCLINE [Concomitant]
     Active Substance: TETRACYCLINE
     Indication: RELAPSING FEVER
     Route: 048
  2. DOXYCYCLINE. [Concomitant]
     Active Substance: DOXYCYCLINE
     Indication: RELAPSING FEVER
     Dosage: 100 MG, BID
     Route: 065
  3. MEROPENEM. [Suspect]
     Active Substance: MEROPENEM
     Indication: SEPSIS
     Dosage: 1 G, TID
     Route: 042

REACTIONS (1)
  - Jarisch-Herxheimer reaction [Unknown]

NARRATIVE: CASE EVENT DATE: 201509
